FAERS Safety Report 21838311 (Version 1)
Quarter: 2023Q1

REPORT INFORMATION
  Report Type: Spontaneous
  Country: US (occurrence: None)
  Receive Date: 20230107
  Receipt Date: 20230107
  Transmission Date: 20230418
  Serious: Yes (Disabling, Other)
  Sender: FDA-Public Use
  Company Number: None

PATIENT
  Age: 79 Year
  Sex: Male
  Weight: 96.75 kg

DRUGS (9)
  1. XIIDRA [Suspect]
     Active Substance: LIFITEGRAST
     Indication: Dry eye
     Dosage: OTHER QUANTITY : 1 CAPSULE(S);?FREQUENCY : TWICE A DAY;?
     Route: 047
     Dates: start: 20230103, end: 20230104
  2. LIPITOR [Concomitant]
     Active Substance: ATORVASTATIN CALCIUM
  3. zebeta 2.5mg [Concomitant]
  4. LOSARTAN [Concomitant]
     Active Substance: LOSARTAN
  5. amlodipine 2.5mg [Concomitant]
  6. HYDROCHLOROTHIAZIDE [Concomitant]
     Active Substance: HYDROCHLOROTHIAZIDE
  7. ASPIRIN [Concomitant]
     Active Substance: ASPIRIN
  8. coq10 100mg [Concomitant]
  9. ZYRTEC [Concomitant]
     Active Substance: CETIRIZINE HYDROCHLORIDE

REACTIONS (4)
  - Sinusitis [None]
  - Cough [None]
  - Chest pain [None]
  - Productive cough [None]

NARRATIVE: CASE EVENT DATE: 20230104
